FAERS Safety Report 7386223-0 (Version None)
Quarter: 2011Q1

REPORT INFORMATION
  Report Type: 
  Country: None (occurrence: None)
  Receive Date: 20110329
  Receipt Date: 20110329
  Transmission Date: 20110831
  Serious: No
  Sender: FDA-Public Use
  Company Number: None

PATIENT
  Age: 38 Year
  Sex: Female
  Weight: 74.8435 kg

DRUGS (1)
  1. CYMBALTA [Suspect]
     Indication: DEPRESSION
     Dosage: DAILY PO
     Route: 048
     Dates: start: 20100901, end: 20110323

REACTIONS (7)
  - NAUSEA [None]
  - DIARRHOEA [None]
  - HEADACHE [None]
  - PAIN [None]
  - DRUG WITHDRAWAL SYNDROME [None]
  - ABDOMINAL DISCOMFORT [None]
  - SENSORY DISTURBANCE [None]
